APPROVED DRUG PRODUCT: ESCITALOPRAM OXALATE
Active Ingredient: ESCITALOPRAM OXALATE
Strength: EQ 5MG BASE/5ML
Dosage Form/Route: SOLUTION;ORAL
Application: A202754 | Product #001 | TE Code: AA
Applicant: MACLEODS PHARMACEUTICALS LTD
Approved: Mar 31, 2016 | RLD: No | RS: No | Type: RX